FAERS Safety Report 7935504-8 (Version None)
Quarter: 2011Q4

REPORT INFORMATION
  Report Type: 
  Country: None (occurrence: None)
  Receive Date: 20111123
  Receipt Date: 20111115
  Transmission Date: 20120403
  Serious: Yes (Other)
  Sender: FDA-Public Use
  Company Number: US-BIOGENIDEC-2011BI040103

PATIENT
  Age: 53 Year
  Sex: Male

DRUGS (36)
  1. CENTRUM [Concomitant]
  2. PLAVIX [Concomitant]
  3. CARBAMAZEPINE [Concomitant]
  4. TIZANIDINE HCL [Concomitant]
  5. ERGOCALCIFEROL [Concomitant]
  6. METOLAZONE [Concomitant]
  7. LEVOTHYROXINE SODIUM [Concomitant]
  8. METFORMIN HCL [Concomitant]
  9. MINOXIDIL [Concomitant]
  10. METHYLCELLULOSE [Concomitant]
  11. ASCORBIC ACID [Concomitant]
  12. FERROUS SULFATE TAB [Concomitant]
  13. NPH, HUMAN INSULIN [Concomitant]
     Route: 058
  14. NPH, HUMAN INSULIN [Concomitant]
     Route: 058
  15. PROTRIPTYLINE [Concomitant]
  16. CYNACOBALAMIN [Concomitant]
  17. VITAMIN E [Concomitant]
  18. ATORVASTATIN [Concomitant]
  19. GABAPENTIN [Concomitant]
  20. NIACIN [Concomitant]
  21. DOCUSATE SODIUM [Concomitant]
  22. FOLIC ACID [Concomitant]
  23. OMEGA-3 FATTY ACID [Concomitant]
  24. TYSABRI [Suspect]
     Indication: MULTIPLE SCLEROSIS
     Route: 042
     Dates: start: 20090121, end: 20110912
  25. CHOLECALCIFEROL [Concomitant]
  26. POLYETHYLENE GLYCOL [Concomitant]
  27. POTASSIUM EXTENDED RELEASE [Concomitant]
  28. FENOFIBRIC ACID [Concomitant]
  29. ASPIRIN [Concomitant]
  30. DESONIDE TOPICAL CREAM [Concomitant]
  31. REGULAR INSULIN [Concomitant]
     Route: 058
  32. OMEPRAZOLE [Concomitant]
  33. CARBAMAZEPINE [Concomitant]
  34. PIOGLITAZONE [Concomitant]
  35. CARVEDILOL [Concomitant]
  36. PROZAC [Concomitant]

REACTIONS (2)
  - IDIOPATHIC THROMBOCYTOPENIC PURPURA [None]
  - DRUG SPECIFIC ANTIBODY PRESENT [None]
